FAERS Safety Report 9295185 (Version 1)
Quarter: 2013Q1

REPORT INFORMATION
  Report Type: Spontaneous
  Country: US (occurrence: None)
  Receive Date: 20130103
  Receipt Date: 20130103
  Transmission Date: 20140127
  Serious: Yes (Other)
  Sender: FDA-Public Use
  Company Number: DSA_54878_2012

PATIENT
  Sex: Female

DRUGS (2)
  1. XENAZINE [Suspect]
     Indication: TARDIVE DYSKINESIA
     Route: 048
  2. ANTIDEPRESSANTS [Concomitant]

REACTIONS (3)
  - Suicidal ideation [None]
  - Depression [None]
  - Anxiety [None]
